FAERS Safety Report 14370811 (Version 8)
Quarter: 2018Q2

REPORT INFORMATION
  Report Type: Spontaneous
  Country: US (occurrence: US)
  Receive Date: 20180110
  Receipt Date: 20180612
  Transmission Date: 20180711
  Serious: No
  Sender: FDA-Public Use
  Company Number: US-PFIZER INC-2018005179

PATIENT
  Age: 39 Year
  Sex: Male
  Weight: 79.37 kg

DRUGS (5)
  1. GENOTROPIN MQ [Suspect]
     Active Substance: SOMATROPIN
     Indication: PITUITARY TUMOUR
     Dosage: 0.6 MG, 1X/DAY (0.25 ML)
     Route: 058
  2. GENOTROPIN MQ [Suspect]
     Active Substance: SOMATROPIN
     Dosage: 0.6 MG, UNK
  3. CORTEF [Concomitant]
     Active Substance: HYDROCORTISONE
     Indication: PITUITARY TUMOUR
     Dosage: 20 MG, DAILY
  4. GENOTROPIN MQ [Suspect]
     Active Substance: SOMATROPIN
     Indication: HYPOPITUITARISM
     Dosage: 0.6 MG, DAILY (7 DAYS /WEEK)
     Route: 058
     Dates: start: 201711
  5. GENOTROPIN MQ [Suspect]
     Active Substance: SOMATROPIN
     Dosage: 0.6 MG, UNK

REACTIONS (4)
  - Injection site mass [Unknown]
  - Device leakage [Unknown]
  - Intentional product misuse [Unknown]
  - Drug dose omission [Unknown]
